FAERS Safety Report 17569011 (Version 4)
Quarter: 2020Q2

REPORT INFORMATION
  Report Type: Report from Study
  Country: US (occurrence: US)
  Receive Date: 20200321
  Receipt Date: 20200615
  Transmission Date: 20200713
  Serious: Yes (Hospitalization, Other)
  Sender: FDA-Public Use
  Company Number: US-INCYTE CORPORATION-2020IN001599

PATIENT

DRUGS (3)
  1. JAKAFI [Suspect]
     Active Substance: RUXOLITINIB
     Dosage: 10 MILLIGRAM, BID
     Route: 048
  2. JAKAFI [Suspect]
     Active Substance: RUXOLITINIB
     Indication: MYELOFIBROSIS
     Dosage: 20 MILLIGRAM, BID
     Route: 048
     Dates: start: 20190212
  3. JAKAFI [Suspect]
     Active Substance: RUXOLITINIB
     Dosage: 10 MILLIGRAM, BID
     Route: 048

REACTIONS (13)
  - Blood count abnormal [Recovering/Resolving]
  - Spinal fracture [Unknown]
  - Skin laceration [Unknown]
  - Skin exfoliation [Unknown]
  - Anaemia [Unknown]
  - Rib fracture [Unknown]
  - Haemorrhage [Unknown]
  - Dysstasia [Unknown]
  - Cellulitis [Unknown]
  - Fall [Unknown]
  - Gait disturbance [Unknown]
  - Muscular weakness [Unknown]
  - Contusion [Unknown]
